FAERS Safety Report 7897720-3 (Version None)
Quarter: 2011Q4

REPORT INFORMATION
  Report Type: 
  Country: None (occurrence: None)
  Receive Date: 20111107
  Receipt Date: 20111101
  Transmission Date: 20120403
  Serious: Yes (Death, Hospitalization)
  Sender: FDA-Public Use
  Company Number: JP-PFIZER INC-2011141735

PATIENT
  Age: 62 Year
  Sex: Male
  Weight: 66.7 kg

DRUGS (2)
  1. TEMSIROLIMUS [Suspect]
     Indication: RENAL CELL CARCINOMA
     Dosage: 25 MG, UNK
     Route: 042
     Dates: start: 20110621, end: 20110621
  2. POLARAMINE [Concomitant]
     Dosage: 5 MG, 1X/DAY
     Route: 042

REACTIONS (3)
  - DEATH [None]
  - OROPHARYNGEAL PAIN [None]
  - PHARYNGEAL OEDEMA [None]
